FAERS Safety Report 12001622 (Version 1)
Quarter: 2016Q1

REPORT INFORMATION
  Report Type: Spontaneous
  Country: US (occurrence: US)
  Receive Date: 20160204
  Receipt Date: 20160204
  Transmission Date: 20160526
  Serious: No
  Sender: FDA-Public Use
  Company Number: US-PERRIGO-15US002902

PATIENT
  Age: 54 Year
  Sex: Female

DRUGS (2)
  1. IBUPROFEN. [Suspect]
     Active Substance: IBUPROFEN
     Indication: ORAL PAIN
     Dosage: 200 MG, EVERY FIVE HOURS
     Route: 048
     Dates: start: 20150311, end: 20150312
  2. IBUPROFEN. [Suspect]
     Active Substance: IBUPROFEN
     Indication: OEDEMA MOUTH

REACTIONS (4)
  - Dyspnoea [Recovering/Resolving]
  - Abdominal discomfort [Recovering/Resolving]
  - Throat tightness [Recovering/Resolving]
  - Heart rate irregular [Recovering/Resolving]

NARRATIVE: CASE EVENT DATE: 20150312
